FAERS Safety Report 4677032-1 (Version None)
Quarter: 2005Q2

REPORT INFORMATION
  Report Type: 
  Country: None (occurrence: None)
  Receive Date: 20050526
  Receipt Date: 20050330
  Transmission Date: 20051028
  Serious: Yes (Disabling)
  Sender: FDA-Public Use
  Company Number: WAES 0503USA05205

PATIENT
  Age: 69 Year
  Sex: Female

DRUGS (3)
  1. VYTORIN [Suspect]
     Indication: HYPERCHOLESTEROLAEMIA
     Dosage: 10-20MG/DAILY; PO
     Route: 048
     Dates: start: 20041119, end: 20050114
  2. SYNTHROID [Concomitant]
  3. ASPIRIN [Concomitant]

REACTIONS (1)
  - MYALGIA [None]
